FAERS Safety Report 4768770-0 (Version None)
Quarter: 2005Q3

REPORT INFORMATION
  Report Type: 
  Country: None (occurrence: None)
  Receive Date: 20050914
  Receipt Date: 20050902
  Transmission Date: 20060218
  Serious: Yes (Hospitalization)
  Sender: FDA-Public Use
  Company Number: CH-BRISTOL-MYERS SQUIBB COMPANY-13106299

PATIENT
  Age: 78 Year
  Sex: Female

DRUGS (5)
  1. GLUCOPHAGE [Suspect]
     Indication: DIABETES MELLITUS NON-INSULIN-DEPENDENT
     Route: 048
     Dates: start: 20040401, end: 20050325
  2. NORVASC [Concomitant]
     Route: 048
  3. APROVEL [Concomitant]
     Route: 048
  4. ASPIRIN [Concomitant]
     Route: 048
  5. SORTIS [Concomitant]
     Route: 048

REACTIONS (3)
  - LACTIC ACIDOSIS [None]
  - RENAL FAILURE CHRONIC [None]
  - SEPSIS [None]
